FAERS Safety Report 16068899 (Version 1)
Quarter: 2019Q1

REPORT INFORMATION
  Report Type: Spontaneous
  Country: US (occurrence: US)
  Receive Date: 20190313
  Receipt Date: 20190313
  Transmission Date: 20190418
  Serious: No
  Sender: FDA-Public Use
  Company Number: US-GLAXOSMITHKLINE-US2019044077

PATIENT
  Age: 63 Year
  Sex: Female

DRUGS (2)
  1. ADVAIR HFA [Concomitant]
     Active Substance: FLUTICASONE PROPIONATE\SALMETEROL XINAFOATE
  2. NUCALA [Suspect]
     Active Substance: MEPOLIZUMAB
     Indication: PRODUCT USED FOR UNKNOWN INDICATION
     Dosage: 100 MG, CYC
     Route: 058
     Dates: start: 20180102

REACTIONS (9)
  - Drug effect incomplete [Recovered/Resolved]
  - Dyspnoea [Recovered/Resolved]
  - Adverse event [Recovered/Resolved]
  - Paraesthesia [Recovered/Resolved]
  - Asthma [Recovered/Resolved]
  - Wheezing [Unknown]
  - Weight increased [Recovered/Resolved]
  - Product dose omission [Recovered/Resolved]
  - Cough [Recovered/Resolved]

NARRATIVE: CASE EVENT DATE: 201809
